FAERS Safety Report 23249636 (Version 1)
Quarter: 2023Q4

REPORT INFORMATION
  Report Type: Other
  Country: GB (occurrence: None)
  Receive Date: 20231201
  Receipt Date: 20231201
  Transmission Date: 20240109
  Serious: Yes (Death, Hospitalization)
  Sender: FDA-Public Use
  Company Number: GB-ROCHE-3160292

PATIENT
  Age: 68 Year
  Sex: Male
  Weight: 60.5 kg

DRUGS (16)
  1. ATEZOLIZUMAB [Suspect]
     Active Substance: ATEZOLIZUMAB
     Indication: Hepatocellular carcinoma
     Dosage: DOSE LAST STUDY DRUG ADMIN PRIOR AE AND SAE 1200 MG?ON 14/JUL/2022 MOST RECENT DOSE OF STUDY DRUG PR
     Route: 041
     Dates: start: 20211222
  2. BEVACIZUMAB [Suspect]
     Active Substance: BEVACIZUMAB
     Indication: Hepatocellular carcinoma
     Route: 065
     Dates: start: 20211222
  3. PREGABALIN [Concomitant]
     Active Substance: PREGABALIN
  4. LANSOPRAZOLE [Concomitant]
     Active Substance: LANSOPRAZOLE
  5. ALBUTEROL [Concomitant]
     Active Substance: ALBUTEROL
  6. OLODATEROL [Concomitant]
     Active Substance: OLODATEROL
  7. CHOLECALCIFEROL [Concomitant]
     Active Substance: CHOLECALCIFEROL
     Indication: Vitamin D decreased
     Dosage: YES
     Dates: start: 20220226
  8. CO-DYDRAMOL [Concomitant]
     Active Substance: ACETAMINOPHEN\DIHYDROCODEINE
  9. DERMOL [Concomitant]
     Active Substance: BENZALKONIUM CHLORIDE\CHLORHEXIDINE HYDROCHLORIDE\ISOPROPYL MYRISTATE\PARAFFIN
     Indication: Haemorrhage intracranial
     Dosage: YES
     Dates: start: 202201
  10. HYDROCORTISONE [Concomitant]
     Active Substance: HYDROCORTISONE
     Indication: Haemorrhage intracranial
     Dates: start: 20220202
  11. LEVOTHYROXINE [Concomitant]
     Active Substance: LEVOTHYROXINE
     Indication: Haemorrhage intracranial
     Dosage: YES
     Dates: start: 20220202
  12. CHLORPHENIRAMINE MALEATE [Concomitant]
     Active Substance: CHLORPHENIRAMINE MALEATE
     Indication: Haemorrhage intracranial
     Dosage: YES
     Dates: start: 20220301
  13. CETRABEN [Concomitant]
     Indication: Haemorrhage intracranial
     Dates: start: 20220301
  14. FEXOFENADINE [Concomitant]
     Active Substance: FEXOFENADINE HYDROCHLORIDE
     Indication: Haemorrhage intracranial
     Dosage: YES
     Dates: start: 20220413
  15. ENOXAPARIN [Concomitant]
     Active Substance: ENOXAPARIN
     Indication: Haemorrhage intracranial
     Dates: start: 20220519
  16. CO-DYDRAMOL [Concomitant]
     Active Substance: ACETAMINOPHEN\DIHYDROCODEINE

REACTIONS (1)
  - Haemorrhage intracranial [Fatal]

NARRATIVE: CASE EVENT DATE: 20220806
